FAERS Safety Report 6359823-4 (Version None)
Quarter: 2009Q3

REPORT INFORMATION
  Report Type: 
  Country: None (occurrence: None)
  Receive Date: 20090917
  Receipt Date: 20090908
  Transmission Date: 20100115
  Serious: Yes (Other)
  Sender: FDA-Public Use
  Company Number: A0807491A

PATIENT

DRUGS (3)
  1. WELLBUTRIN [Suspect]
     Indication: DRUG USE FOR UNKNOWN INDICATION
  2. ROBITUSSIN [Suspect]
     Indication: DRUG USE FOR UNKNOWN INDICATION
  3. DEXTROMETHORPHAN HYDROBROMIDE [Suspect]

REACTIONS (7)
  - BURNING SENSATION [None]
  - DRUG INTERACTION [None]
  - HALLUCINATION, AUDITORY [None]
  - HALLUCINATION, VISUAL [None]
  - MANIA [None]
  - SEROTONIN SYNDROME [None]
  - TREMOR [None]
